FAERS Safety Report 12559472 (Version 1)
Quarter: 2016Q3

REPORT INFORMATION
  Report Type: Spontaneous
  Country: US (occurrence: US)
  Receive Date: 20160715
  Receipt Date: 20160715
  Transmission Date: 20161109
  Serious: No
  Sender: FDA-Public Use
  Company Number: US-PFIZER INC-2016340367

PATIENT

DRUGS (1)
  1. DUAVEE [Suspect]
     Active Substance: BAZEDOXIFENE ACETATE\ESTROGENS, CONJUGATED
     Dosage: UNK

REACTIONS (7)
  - Hair disorder [Unknown]
  - Insomnia [Unknown]
  - Feeling abnormal [Unknown]
  - Skin disorder [Unknown]
  - Memory impairment [Unknown]
  - Weight abnormal [Unknown]
  - Product use issue [Unknown]
